FAERS Safety Report 7310241 (Version 6)
Quarter: 2013Q4

REPORT INFORMATION
  Report Type: Spontaneous
  Country: US (occurrence: US)
  Receive Date: 20100309
  Receipt Date: 20131127
  Transmission Date: 20140711
  Serious: Yes (Other)
  Sender: FDA-Public Use
  Company Number: US-BIOGENIDEC-2010BI004938

PATIENT
  Age: 51 Year
  Sex: Male
  Weight: 122 kg

DRUGS (2)
  1. AVONEX [Suspect]
     Indication: MULTIPLE SCLEROSIS
     Route: 030
     Dates: start: 20071007, end: 20091015
  2. PREDNISONE [Concomitant]
     Dates: start: 200711

REACTIONS (5)
  - Suicide attempt [Recovered/Resolved]
  - Drug ineffective [Unknown]
  - Incontinence [Recovered/Resolved]
  - Intervertebral disc protrusion [Recovered/Resolved]
  - Diarrhoea [Recovered/Resolved]
